FAERS Safety Report 8375148-X (Version None)
Quarter: 2012Q2

REPORT INFORMATION
  Report Type: 
  Country: None (occurrence: None)
  Receive Date: 20120521
  Receipt Date: 20120510
  Transmission Date: 20120825
  Serious: Yes (Other)
  Sender: FDA-Public Use
  Company Number: US-TEVA-336548USA

PATIENT
  Sex: Male
  Weight: 109 kg

DRUGS (29)
  1. AMLODIPINE BESYLATE [Concomitant]
     Dates: start: 20110218
  2. PIOGLITAZONE [Concomitant]
     Dates: start: 20100101, end: 20100407
  3. BECLOMETHASONE DIPROPIONATE [Concomitant]
     Dates: start: 20100101
  4. CENTRUM [Concomitant]
     Dates: start: 20100101
  5. COLECALCIFEROL [Concomitant]
  6. NAFTIFINE HYDROCHLORIDE [Concomitant]
     Dates: start: 20100101
  7. TREANDA [Suspect]
     Route: 042
     Dates: start: 20100831, end: 20101027
  8. PAMIDRONATE DISODIUM [Concomitant]
     Dates: start: 20100101
  9. LEVOTHYROXINE SODIUM [Concomitant]
     Dates: start: 20100101
  10. DIMETICONE, ACTIVATED [Concomitant]
     Dates: start: 20110621
  11. LOPERAMIDE HCL [Concomitant]
     Dates: start: 20100101
  12. TREANDA [Suspect]
     Route: 042
     Dates: start: 20101207, end: 20110105
  13. DIPHENHYDRAMINE HYDROCHLORIDE [Concomitant]
     Dates: start: 20100101
  14. METHYLCELLULOSE [Concomitant]
     Dates: start: 20100101
  15. LENALIDOMIDE [Suspect]
     Indication: MULTIPLE MYELOMA
     Dates: start: 20100803, end: 20120410
  16. ATENOLOL [Concomitant]
     Dates: start: 20100101
  17. CELECOXIB [Concomitant]
     Dates: start: 20100101, end: 20100407
  18. WARFARIN SODIUM [Concomitant]
     Dates: start: 20100101
  19. LIBRAX [Concomitant]
     Dates: start: 20100101
  20. METFORMIN HCL [Concomitant]
     Dates: start: 20100101
  21. ESOMEPRAZOLE MAGNESIUM [Concomitant]
     Dates: start: 20100101
  22. MINERAL OIL EMULSION [Concomitant]
     Dates: start: 20100101
  23. HYDROCORTISONE [Concomitant]
     Route: 061
     Dates: start: 20100101
  24. STRESSTABS [Concomitant]
     Dates: start: 20100101
  25. FEXOFENADINE [Concomitant]
     Dates: start: 20100101
  26. TUCKS [Concomitant]
     Dates: start: 20100101
  27. TREANDA [Suspect]
     Indication: MULTIPLE MYELOMA
     Route: 042
     Dates: start: 20100803, end: 20100804
  28. DEXAMETHASONE [Suspect]
     Indication: MULTIPLE MYELOMA
     Dates: start: 20100803, end: 20120410
  29. ERTACZO [Concomitant]

REACTIONS (1)
  - HEPATIC ENZYME INCREASED [None]
